FAERS Safety Report 24966070 (Version 3)
Quarter: 2025Q1

REPORT INFORMATION
  Report Type: Spontaneous
  Country: DE (occurrence: DE)
  Receive Date: 20250213
  Receipt Date: 20250304
  Transmission Date: 20250408
  Serious: Yes (Hospitalization, Other)
  Sender: MERCK SHARP & DOHME LLC
  Company Number: DE-009507513-2254472

PATIENT
  Age: 62 Year
  Sex: Female

DRUGS (9)
  1. SOTATERCEPT [Suspect]
     Active Substance: SOTATERCEPT
     Indication: Pulmonary arterial hypertension
     Dosage: EVERY 3 WEEKS
  2. SOTATERCEPT [Suspect]
     Active Substance: SOTATERCEPT
     Dosage: EVERY 3 WEEKS
     Dates: start: 20250128, end: 20250128
  3. SOTATERCEPT [Suspect]
     Active Substance: SOTATERCEPT
     Dosage: 4TH DOSE, EVERY 3 WEEKS
     Dates: start: 20250102, end: 20250102
  4. SOTATERCEPT [Suspect]
     Active Substance: SOTATERCEPT
     Dosage: EVERY 3 WEEKS
     Dates: start: 20241119, end: 20241119
  5. SOTATERCEPT [Suspect]
     Active Substance: SOTATERCEPT
     Dosage: EVERY 3 WEEKS
     Dates: start: 20241210, end: 20241210
  6. WINREVAIR [Suspect]
     Active Substance: SOTATERCEPT-CSRK
     Indication: Pulmonary arterial hypertension
     Dosage: EVERY 3 WEEKS
     Dates: start: 20241029, end: 20241029
  7. WINREVAIR [Suspect]
     Active Substance: SOTATERCEPT-CSRK
  8. WINREVAIR [Suspect]
     Active Substance: SOTATERCEPT-CSRK
  9. WINREVAIR [Suspect]
     Active Substance: SOTATERCEPT-CSRK

REACTIONS (4)
  - Gastrointestinal haemorrhage [Recovering/Resolving]
  - Iron deficiency anaemia [Recovering/Resolving]
  - Inappropriate schedule of product administration [Unknown]
  - Inappropriate schedule of product administration [Unknown]

NARRATIVE: CASE EVENT DATE: 20241210
